FAERS Safety Report 13904373 (Version 2)
Quarter: 2018Q2

REPORT INFORMATION
  Report Type: Spontaneous
  Country: JP (occurrence: JP)
  Receive Date: 20170825
  Receipt Date: 20180402
  Transmission Date: 20180711
  Serious: Yes (Other)
  Sender: FDA-Public Use
  Company Number: JP-009507513-1708JPN002377J

PATIENT
  Age: 69 Year
  Sex: Female

DRUGS (3)
  1. BRIDION [Suspect]
     Active Substance: SUGAMMADEX
     Dosage: 200 MG, UNK
     Route: 042
     Dates: start: 201707, end: 201707
  2. BRIDION [Suspect]
     Active Substance: SUGAMMADEX
     Indication: NEUROMUSCULAR BLOCKADE REVERSAL
     Dosage: UNK
     Route: 042
     Dates: start: 201707, end: 201707
  3. ESLAX INTRAVENOUS 25MG/2.5ML [Suspect]
     Active Substance: ROCURONIUM BROMIDE
     Indication: NEUROMUSCULAR BLOCKING THERAPY
     Dosage: UNK
     Route: 042
     Dates: start: 201707, end: 201707

REACTIONS (3)
  - Recurrence of neuromuscular blockade [Recovering/Resolving]
  - Respiratory depression [Recovering/Resolving]
  - Depressed level of consciousness [Recovering/Resolving]

NARRATIVE: CASE EVENT DATE: 201707
